FAERS Safety Report 6212281-2 (Version None)
Quarter: 2009Q2

REPORT INFORMATION
  Report Type: 
  Country: None (occurrence: None)
  Receive Date: 20090529
  Receipt Date: 20090521
  Transmission Date: 20091009
  Serious: Yes (Other)
  Sender: FDA-Public Use
  Company Number: CHPA2009US12107

PATIENT
  Sex: Female

DRUGS (1)
  1. PRIVATE LABEL STRENGTH UNKNOWN   (NICOTINE) [Suspect]
     Indication: SMOKING CESSATION THERAPY
     Dosage: QD, TRANSDERMAL
     Route: 062
     Dates: start: 20090201, end: 20090201

REACTIONS (6)
  - ERYTHEMA [None]
  - HEART RATE INCREASED [None]
  - PNEUMONIA [None]
  - PRURITUS [None]
  - THERAPEUTIC RESPONSE INCREASED [None]
  - URTICARIA [None]
